FAERS Safety Report 16318010 (Version 2)
Quarter: 2020Q2

REPORT INFORMATION
  Report Type: Spontaneous
  Country: EC (occurrence: EC)
  Receive Date: 20190516
  Receipt Date: 20200521
  Transmission Date: 20200713
  Serious: Yes (Hospitalization)
  Sender: FDA-Public Use
  Company Number: EC-SUN PHARMACEUTICAL INDUSTRIES LTD-2019R1-207974

PATIENT
  Age: 14 Year
  Sex: Female

DRUGS (10)
  1. ATORVASTATIN [Suspect]
     Active Substance: ATORVASTATIN
     Indication: SYSTEMIC LUPUS ERYTHEMATOSUS
     Dosage: 10 MILLIGRAM
     Route: 065
  2. HYDROXYCHLOROQUINE [Suspect]
     Active Substance: HYDROXYCHLOROQUINE
     Indication: SYSTEMIC LUPUS ERYTHEMATOSUS
     Dosage: 200 MILLIGRAM
     Route: 065
  3. HYDROXYCHLOROQUINE [Suspect]
     Active Substance: HYDROXYCHLOROQUINE
     Indication: NEPHROTIC SYNDROME
  4. ATORVASTATIN [Suspect]
     Active Substance: ATORVASTATIN
     Indication: NEPHROTIC SYNDROME
  5. FUROSEMIDE. [Suspect]
     Active Substance: FUROSEMIDE
     Indication: SYSTEMIC LUPUS ERYTHEMATOSUS
     Dosage: 40 MILLIGRAM
     Route: 065
  6. FUROSEMIDE. [Suspect]
     Active Substance: FUROSEMIDE
     Indication: NEPHROTIC SYNDROME
  7. ENALAPRIL [Suspect]
     Active Substance: ENALAPRIL
     Indication: NEPHROTIC SYNDROME
  8. PREDNISONE. [Suspect]
     Active Substance: PREDNISONE
     Indication: SYSTEMIC LUPUS ERYTHEMATOSUS
     Dosage: 30 MILLIGRAM
     Route: 065
  9. PREDNISONE. [Suspect]
     Active Substance: PREDNISONE
     Indication: NEPHROTIC SYNDROME
  10. ENALAPRIL [Suspect]
     Active Substance: ENALAPRIL
     Indication: SYSTEMIC LUPUS ERYTHEMATOSUS
     Dosage: 5 MILLIGRAM
     Route: 065

REACTIONS (1)
  - Posterior reversible encephalopathy syndrome [Recovered/Resolved]
